FAERS Safety Report 5574818-6 (Version None)
Quarter: 2007Q4

REPORT INFORMATION
  Report Type: 
  Country: None (occurrence: None)
  Receive Date: 20071221
  Receipt Date: 20071221
  Transmission Date: 20080405
  Serious: Yes (Other)
  Sender: FDA-Public Use
  Company Number: None

PATIENT
  Sex: Female
  Weight: 71.55 kg

DRUGS (1)
  1. GADOLINIUM [Suspect]
     Dosage: 20MLS

REACTIONS (3)
  - NASAL CONGESTION [None]
  - POST PROCEDURAL COMPLICATION [None]
  - THROAT IRRITATION [None]
